FAERS Safety Report 8463565-9 (Version None)
Quarter: 2012Q2

REPORT INFORMATION
  Report Type: 
  Country: None (occurrence: None)
  Receive Date: 20120625
  Receipt Date: 20120619
  Transmission Date: 20120825
  Serious: Yes (Other)
  Sender: FDA-Public Use
  Company Number: JP-PFIZER INC-2012136678

PATIENT
  Age: 64 Year
  Sex: Female

DRUGS (2)
  1. AMBISOME [Concomitant]
     Dosage: 200 MG, 1X/DAY
     Route: 042
     Dates: start: 20120605
  2. ZYVOX [Suspect]
     Dosage: 600 MG, 1X/DAY
     Route: 042

REACTIONS (1)
  - RENAL IMPAIRMENT [None]
